FAERS Safety Report 7110374-9 (Version None)
Quarter: 2010Q4

REPORT INFORMATION
  Report Type: 
  Country: None (occurrence: None)
  Receive Date: 20101118
  Receipt Date: 20101116
  Transmission Date: 20110411
  Serious: Yes (Other)
  Sender: FDA-Public Use
  Company Number: US-PFIZER INC-2010116081

PATIENT
  Sex: Female

DRUGS (17)
  1. CHANTIX [Suspect]
     Indication: SMOKING CESSATION THERAPY
     Dosage: STARTER MONTH PACK AND REFILLS FOR CONTINUING MONTH PACKS
     Dates: start: 20060808, end: 20060831
  2. CHANTIX [Suspect]
     Dosage: STARTER MONTH PACK AND REFILLS FOR CONTINUING MONTH PACKS
     Dates: start: 20080506, end: 20080601
  3. CHANTIX [Suspect]
     Dosage: STARTER MONTH PACK AND REFILLS FOR CONTINUING MONTH PACKS
     Dates: start: 20080801, end: 20081001
  4. HYDROCODONE [Concomitant]
     Indication: BACK PAIN
     Dosage: UNK
     Dates: start: 19980101
  5. HYDROCODONE [Concomitant]
     Indication: ARTHRITIS
  6. HYDROCODONE [Concomitant]
     Indication: OSTEOARTHRITIS
  7. ALLEGRA D 24 HOUR [Concomitant]
     Indication: HYPERSENSITIVITY
     Dosage: UNK
     Dates: start: 19990101
  8. XANAX [Concomitant]
     Indication: ANXIETY
     Dosage: UNK
     Dates: start: 19990101
  9. XANAX [Concomitant]
  10. LEXAPRO [Concomitant]
     Indication: DEPRESSION
     Dosage: UNK
     Dates: start: 19990101
  11. LEXAPRO [Concomitant]
     Indication: ANXIETY
  12. LEXAPRO [Concomitant]
  13. LEXAPRO [Concomitant]
  14. MONTELUKAST [Concomitant]
     Indication: CHRONIC OBSTRUCTIVE PULMONARY DISEASE
     Dosage: UNK
     Dates: start: 19990101
  15. OXYGEN [Concomitant]
     Indication: CHRONIC OBSTRUCTIVE PULMONARY DISEASE
     Dosage: UNK
     Dates: start: 19990101
  16. KLONOPIN [Concomitant]
     Indication: ANXIETY
     Dosage: UNK
     Dates: start: 20030101, end: 20090501
  17. ACETYLSALICYLIC ACID [Concomitant]
     Indication: CARDIAC DISORDER
     Dosage: 81 MG, UNK
     Dates: start: 20040101

REACTIONS (5)
  - ANXIETY [None]
  - DEPRESSION [None]
  - INSOMNIA [None]
  - NIGHTMARE [None]
  - SUICIDAL IDEATION [None]
